FAERS Safety Report 4364971-4 (Version None)
Quarter: 2004Q2

REPORT INFORMATION
  Report Type: 
  Country: None (occurrence: None)
  Receive Date: 20040521
  Receipt Date: 20040511
  Transmission Date: 20050107
  Serious: Yes (Hospitalization)
  Sender: FDA-Public Use
  Company Number: 04P-155-0260802-00

PATIENT
  Age: 12 Year
  Sex: Female

DRUGS (9)
  1. KALETRA [Suspect]
     Indication: HIV INFECTION
     Dosage: 1 CAPSULE, 2 IN 1 D, PER ORAL
     Route: 048
     Dates: start: 20040310
  2. KALETRA [Suspect]
     Indication: HIV INFECTION
     Dosage: 1 ML, 2 IN 1 D, PER ORAL
     Route: 048
     Dates: start: 20040310
  3. AZITHROMYCIN [Concomitant]
  4. ETHAMBUTOL HCL [Concomitant]
  5. OFLOXACIN [Concomitant]
  6. SAQUINAVIR [Concomitant]
  7. BACTRIM [Concomitant]
  8. PREDNISOLONE [Concomitant]
  9. FLUCONAZOLE [Concomitant]

REACTIONS (9)
  - CHILLS [None]
  - GRAND MAL CONVULSION [None]
  - HYPOKALAEMIA [None]
  - HYPONATRAEMIA [None]
  - PYELONEPHRITIS ACUTE [None]
  - SEPSIS [None]
  - SOMNOLENCE [None]
  - URINARY TRACT INFECTION [None]
  - VOMITING [None]
